FAERS Safety Report 13278205 (Version 1)
Quarter: 2017Q1

REPORT INFORMATION
  Report Type: Spontaneous
  Country: CN (occurrence: CN)
  Receive Date: 20170228
  Receipt Date: 20170228
  Transmission Date: 20170428
  Serious: Yes (Other)
  Sender: FDA-Public Use
  Company Number: CN-SA-2017SA032549

PATIENT
  Age: 53 Year
  Sex: Female
  Weight: 44 kg

DRUGS (2)
  1. GLUCOSE INJECTION [Concomitant]
     Route: 065
     Dates: start: 20161209
  2. OXALIPLATIN. [Suspect]
     Active Substance: OXALIPLATIN
     Indication: COLON CANCER
     Route: 041
     Dates: start: 20161209, end: 20161209

REACTIONS (1)
  - Quadriparesis [Recovering/Resolving]

NARRATIVE: CASE EVENT DATE: 20161209
